FAERS Safety Report 6674766-4 (Version None)
Quarter: 2010Q2

REPORT INFORMATION
  Report Type: 
  Country: None (occurrence: None)
  Receive Date: 20100409
  Receipt Date: 20100330
  Transmission Date: 20101027
  Serious: Yes (Hospitalization)
  Sender: FDA-Public Use
  Company Number: JP-PFIZER INC-2009304768

PATIENT
  Age: 64 Year
  Sex: Male
  Weight: 52.8 kg

DRUGS (15)
  1. REVATIO [Suspect]
     Indication: PULMONARY HYPERTENSION
     Dosage: 20 MG, 3X/DAY
     Route: 048
     Dates: start: 20091122, end: 20091124
  2. REVATIO [Suspect]
     Dosage: 10 MG, 3X/DAY
     Route: 048
     Dates: start: 20091124, end: 20091126
  3. CARVEDILOL [Concomitant]
     Dosage: UNK
     Route: 048
  4. CANDESARTAN CILEXETIL [Concomitant]
     Dosage: UNK
     Route: 048
  5. LIVALO [Concomitant]
     Dosage: UNK
     Route: 048
  6. ASPIRIN [Concomitant]
     Dosage: UNK
     Route: 048
  7. FERROGRADUMET [Concomitant]
     Dosage: UNK
     Route: 048
  8. DIART [Concomitant]
     Dosage: UNK
     Route: 048
  9. ALLOPURINOL [Concomitant]
     Dosage: UNK
     Route: 048
  10. ADALAT CC [Concomitant]
     Dosage: UNK
     Route: 048
  11. FAMOTIDINE [Concomitant]
     Dosage: UNK
     Route: 048
  12. LASIX [Concomitant]
     Dosage: UNK
     Route: 048
  13. ALOSENN [Concomitant]
     Dosage: UNK
     Route: 048
  14. HANP [Concomitant]
     Dosage: UNK
     Route: 042
     Dates: start: 20091107, end: 20091205
  15. NOVO HEPARIN CALCIUM [Concomitant]
     Route: 042
     Dates: start: 20091107, end: 20091208

REACTIONS (1)
  - GENITAL PAIN [None]
